FAERS Safety Report 5962716-5 (Version None)
Quarter: 2008Q4

REPORT INFORMATION
  Report Type: 
  Country: None (occurrence: None)
  Receive Date: 20081124
  Receipt Date: 20081118
  Transmission Date: 20090506
  Serious: Yes (Hospitalization)
  Sender: FDA-Public Use
  Company Number: US-JNJFOC-20081104494

PATIENT
  Age: 29 Year
  Sex: Female
  Weight: 53.07 kg

DRUGS (5)
  1. RISPERIDONE [Suspect]
     Indication: SCHIZOPHRENIA
     Route: 030
  2. ACAMPROSATE [Concomitant]
     Indication: ALCOHOLISM
  3. CLONAZEPAM [Concomitant]
     Indication: ANXIETY
  4. RISPERDAL [Concomitant]
     Indication: SCHIZOPHRENIA
  5. CYCLOBENZAPRINE HCL [Concomitant]
     Indication: PAIN

REACTIONS (4)
  - ALCOHOLISM [None]
  - HALLUCINATION [None]
  - PARANOIA [None]
  - SCHIZOPHRENIA [None]
